FAERS Safety Report 25090050 (Version 2)
Quarter: 2025Q3

REPORT INFORMATION
  Report Type: Report from Study
  Country: US (occurrence: US)
  Receive Date: 20250318
  Receipt Date: 20250802
  Transmission Date: 20251020
  Serious: Yes (Other)
  Sender: ALEXION PHARMACEUTICALS
  Company Number: US-AstraZeneca-CH-00825430A

PATIENT
  Age: 64 Year
  Sex: Female
  Weight: 104.31 kg

DRUGS (4)
  1. TEZEPELUMAB [Suspect]
     Active Substance: TEZEPELUMAB
     Indication: Asthma
     Route: 065
  2. ROSUVASTATIN [Suspect]
     Active Substance: ROSUVASTATIN
  3. SYMBICORT [Suspect]
     Active Substance: BUDESONIDE\FORMOTEROL FUMARATE DIHYDRATE
  4. BREZTRI [Suspect]
     Active Substance: BUDESONIDE\FORMOTEROL\GLYCOPYRROLATE

REACTIONS (29)
  - Renal failure [Unknown]
  - Type 2 diabetes mellitus [Unknown]
  - Fatigue [Unknown]
  - Malaise [Unknown]
  - Abdominal pain [Unknown]
  - Insomnia [Unknown]
  - Muscular weakness [Unknown]
  - Asthenia [Unknown]
  - Dizziness [Unknown]
  - Dyspnoea [Unknown]
  - Exercise tolerance decreased [Unknown]
  - Hypertension [Unknown]
  - Musculoskeletal stiffness [Unknown]
  - Swelling [Unknown]
  - Arthralgia [Unknown]
  - Arthritis [Unknown]
  - Asthma [Unknown]
  - Cholelithiasis [Unknown]
  - Hypercholesterolaemia [Unknown]
  - Ovarian cyst [Unknown]
  - Snoring [Unknown]
  - Chronic obstructive pulmonary disease [Unknown]
  - Cough [Unknown]
  - Hypersomnia [Unknown]
  - Antinuclear antibody positive [Unknown]
  - Vitamin D deficiency [Unknown]
  - Osteoarthritis [Unknown]
  - Respiratory disorder [Unknown]
  - Sleep apnoea syndrome [Unknown]
